FAERS Safety Report 5127522-2 (Version None)
Quarter: 2006Q4

REPORT INFORMATION
  Report Type: 
  Country: None (occurrence: None)
  Receive Date: 20061010
  Receipt Date: 20060927
  Transmission Date: 20070319
  Serious: Yes (Hospitalization)
  Sender: FDA-Public Use
  Company Number: 2006118037

PATIENT
  Age: 73 Year
  Sex: Male

DRUGS (8)
  1. ZYVOX [Suspect]
     Dosage: 1200 MG (600 MG, BID EVERY DAY) ORAL
     Route: 048
     Dates: start: 20060721, end: 20060727
  2. ATENOLOL [Concomitant]
  3. FENTANYL [Concomitant]
  4. FERROUS SULFATE TAB [Concomitant]
  5. FUROSEMIDE [Concomitant]
  6. GABAPENTIN [Concomitant]
  7. ACETAMINOPHEN [Concomitant]
  8. MORPHINE SULFATE [Concomitant]

REACTIONS (4)
  - BLOOD POTASSIUM INCREASED [None]
  - C-REACTIVE PROTEIN INCREASED [None]
  - PYREXIA [None]
  - RENAL FAILURE ACUTE [None]
